FAERS Safety Report 19101922 (Version 1)
Quarter: 2021Q2

REPORT INFORMATION
  Report Type: Spontaneous
  Country: US (occurrence: US)
  Receive Date: 20210407
  Receipt Date: 20210407
  Transmission Date: 20210717
  Serious: No
  Sender: FDA-Public Use
  Company Number: US-PFIZER INC-2021178972

PATIENT
  Age: 79 Year

DRUGS (1)
  1. PREMARIN [Suspect]
     Active Substance: ESTROGENS, CONJUGATED
     Indication: HYSTERECTOMY
     Dosage: 0.3 MG (TAKE IT ABOUT 4 TIMES A WEEK)

REACTIONS (2)
  - Hypertension [Unknown]
  - Off label use [Unknown]
